FAERS Safety Report 21523301 (Version 2)
Quarter: 2022Q4

REPORT INFORMATION
  Report Type: Spontaneous
  Country: MY (occurrence: MY)
  Receive Date: 20221029
  Receipt Date: 20221114
  Transmission Date: 20230113
  Serious: Yes (Other)
  Sender: FDA-Public Use
  Company Number: MY-Accord-284115

PATIENT
  Age: 52 Year
  Sex: Male

DRUGS (2)
  1. CISPLATIN [Suspect]
     Active Substance: CISPLATIN
     Indication: Neuroendocrine carcinoma of prostate
     Dates: start: 202203, end: 202207
  2. ETOPOSIDE [Suspect]
     Active Substance: ETOPOSIDE
     Indication: Neuroendocrine carcinoma of prostate
     Dates: start: 202203, end: 202207

REACTIONS (2)
  - Off label use [Unknown]
  - Intracranial pressure increased [Unknown]

NARRATIVE: CASE EVENT DATE: 20220101
